FAERS Safety Report 8808100 (Version 1)
Quarter: 2012Q4

REPORT INFORMATION
  Report Type: 
  Country: US (occurrence: US)
  Receive Date: 20120925
  Receipt Date: 20120925
  Transmission Date: 20130627
  Serious: Yes (Death, Other)
  Sender: FDA-Public Use
  Company Number: US-ROCHE-1122783

PATIENT
  Age: 48 Year
  Sex: Female

DRUGS (2)
  1. AVASTIN [Suspect]
     Indication: BREAST CANCER FEMALE
     Route: 065
  2. HERCEPTIN [Suspect]
     Indication: BREAST CANCER FEMALE
     Route: 065

REACTIONS (4)
  - Death [Fatal]
  - Metastases to bone [Unknown]
  - Metastases to lung [Unknown]
  - Disease progression [Unknown]
